FAERS Safety Report 9486649 (Version 1)
Quarter: 2013Q3

REPORT INFORMATION
  Report Type: Spontaneous
  Country: US (occurrence: None)
  Receive Date: 20130827
  Receipt Date: 20130827
  Transmission Date: 20140515
  Serious: Yes (Other)
  Sender: FDA-Public Use
  Company Number: None

PATIENT
  Age: 55 Year
  Sex: Female

DRUGS (1)
  1. CYMBALTA [Suspect]
     Indication: FIBROMYALGIA
     Dosage: *20MG*(LOWEST DOSE) 1 PILL PER 24 HR PERIOD (7WKS) 1 CAPSULE BY MOUTH DAILY BY MOUTH BEFORE BED, ON A FULL STOMACH (CAPSULE FORM.
     Route: 048
     Dates: start: 20130609, end: 20130728

REACTIONS (12)
  - Nausea [None]
  - Hyperhidrosis [None]
  - Fatigue [None]
  - Somnolence [None]
  - Constipation [None]
  - Fatigue [None]
  - Lethargy [None]
  - Mood swings [None]
  - Anger [None]
  - Agitation [None]
  - Weight increased [None]
  - Thinking abnormal [None]
